FAERS Safety Report 4558054-8 (Version None)
Quarter: 2005Q1

REPORT INFORMATION
  Report Type: 
  Country: None (occurrence: None)
  Receive Date: 20050121
  Receipt Date: 20040719
  Transmission Date: 20050727
  Serious: No
  Sender: FDA-Public Use
  Company Number: US-BRISTOL-MYERS SQUIBB COMPANY-12645347

PATIENT
  Age: 61 Year
  Sex: Female
  Weight: 75 kg

DRUGS (8)
  1. SERZONE [Suspect]
     Indication: DEPRESSION
     Dosage: THERAPY INITIATED 9 YRS AGO 100 MG,1 TAB,ONCE DAILY (AM) AND 200 MG,2 TABS,ONCE DAILY (PM)
     Route: 048
     Dates: end: 20040614
  2. PREMARIN [Concomitant]
     Dates: start: 19800101
  3. SYNTHROID [Concomitant]
     Dates: start: 19790101
  4. ALLOPURINOL [Concomitant]
  5. FOLIC ACID [Concomitant]
  6. ULTRACET [Concomitant]
  7. XANAX [Concomitant]
  8. METHOTREXATE [Concomitant]

REACTIONS (1)
  - NERVE INJURY [None]
